FAERS Safety Report 7298555-5 (Version None)
Quarter: 2010Q4

REPORT INFORMATION
  Report Type: 
  Country: None (occurrence: None)
  Receive Date: 20101029
  Receipt Date: 20100917
  Transmission Date: 20110411
  Serious: Yes (Hospitalization)
  Sender: FDA-Public Use
  Company Number: 2010-2949

PATIENT
  Age: 2 Year
  Weight: 6.7 kg

DRUGS (2)
  1. INCRELEX [Suspect]
     Indication: INSULIN-LIKE GROWTH FACTOR DECREASED
     Dosage: 1.2 MG (0.6  MG,2 IN 1 D),SUBCUTANEOUS ; 0.96 MG (0.48,2 IN 1 D),SUBCUTANEOUS
     Route: 058
     Dates: end: 20100914
  2. INCRELEX [Suspect]
     Indication: INSULIN-LIKE GROWTH FACTOR DECREASED
     Dosage: 1.2 MG (0.6  MG,2 IN 1 D),SUBCUTANEOUS ; 0.96 MG (0.48,2 IN 1 D),SUBCUTANEOUS
     Route: 058
     Dates: start: 20090406

REACTIONS (1)
  - HYPOGLYCAEMIA [None]
